FAERS Safety Report 8004607-4 (Version None)
Quarter: 2011Q4

REPORT INFORMATION
  Report Type: 
  Country: None (occurrence: None)
  Receive Date: 20111220
  Receipt Date: 20111213
  Transmission Date: 20120403
  Serious: Yes (Other)
  Sender: FDA-Public Use
  Company Number: DKLU1075147

PATIENT
  Age: 6 Year
  Sex: Female

DRUGS (5)
  1. DAUNORUBICIN HCL [Suspect]
     Indication: ACUTE LYMPHOCYTIC LEUKAEMIA
     Dosage: 30 MG/M2 MILLIGRAM(S)/SQ. METER, INDUCTION THERAPY
  2. OCTREOTIDE ACETATE [Suspect]
     Indication: PANCREATITIS ACUTE
  3. PREDNISONE TAB [Suspect]
     Indication: ACUTE LYMPHOCYTIC LEUKAEMIA
     Dosage: 60 MG/M2 MILLIGRAM(S)/SQ. METER, INDUCTION THERAPY
  4. ELSPAR [Suspect]
     Indication: ACUTE LYMPHOCYTIC LEUKAEMIA
     Dosage: INDUCTION THERAPY
  5. VINCRISTINE [Suspect]
     Indication: ACUTE LYMPHOCYTIC LEUKAEMIA
     Dosage: 1.5 MG/M2 MILLIGRAM(S)/SQ. METER, INDUCTION THERAPY

REACTIONS (17)
  - ABDOMINAL RIGIDITY [None]
  - PROTHROMBIN TIME PROLONGED [None]
  - PANCREATITIS ACUTE [None]
  - PALLOR [None]
  - BILIRUBIN CONJUGATED INCREASED [None]
  - GRAND MAL CONVULSION [None]
  - OCULAR ICTERUS [None]
  - ASCITES [None]
  - PAPILLOEDEMA [None]
  - ACTIVATED PARTIAL THROMBOPLASTIN TIME PROLONGED [None]
  - URINARY INCONTINENCE [None]
  - PANCREATIC NECROSIS [None]
  - HYPERTENSION [None]
  - TARDIVE DYSKINESIA [None]
  - CONFUSIONAL STATE [None]
  - PYREXIA [None]
  - DRUG INTERACTION [None]
